FAERS Safety Report 6435336-6 (Version None)
Quarter: 2009Q4

REPORT INFORMATION
  Report Type: 
  Country: None (occurrence: None)
  Receive Date: 20091110
  Receipt Date: 20091030
  Transmission Date: 20100525
  Serious: Yes (Other)
  Sender: FDA-Public Use
  Company Number: NZ-AMGEN-US373236

PATIENT

DRUGS (1)
  1. NEULASTIM [Suspect]
     Indication: DRUG USE FOR UNKNOWN INDICATION
     Route: 065

REACTIONS (2)
  - DRUG INEFFECTIVE [None]
  - NEUTROPENIC SEPSIS [None]
